FAERS Safety Report 7769079-3 (Version None)
Quarter: 2011Q3

REPORT INFORMATION
  Report Type: 
  Country: None (occurrence: None)
  Receive Date: 20110922
  Receipt Date: 20110413
  Transmission Date: 20111222
  Serious: Yes (Hospitalization)
  Sender: FDA-Public Use
  Company Number: US-ASTRAZENECA-2009UW21576

PATIENT
  Age: 43 Year
  Sex: Male
  Weight: 117.9 kg

DRUGS (11)
  1. LISINOPRIL [Concomitant]
     Dates: start: 20070723
  2. SERTRALINE HYDROCHLORIDE [Concomitant]
     Dates: start: 20060823
  3. EFFEXOR XR [Concomitant]
     Dates: start: 20070723
  4. HYDROXYZINE PAM [Concomitant]
     Dates: start: 20070727
  5. MIRTAZAPINE [Concomitant]
     Dates: start: 20070626
  6. SEROQUEL [Suspect]
     Route: 048
     Dates: start: 20070723
  7. CLONAZEPAM [Concomitant]
     Dates: start: 20070727
  8. PREVACID [Concomitant]
     Dates: start: 20020405
  9. SEROQUEL [Suspect]
     Indication: DEPRESSION
     Route: 048
     Dates: start: 20070101, end: 20080101
  10. ZOLOFT [Concomitant]
     Dates: start: 20051110
  11. HYDROCHLOROTHIAZIDE [Concomitant]
     Dates: start: 20070116

REACTIONS (1)
  - TYPE 2 DIABETES MELLITUS [None]
